FAERS Safety Report 14401619 (Version 1)
Quarter: 2018Q1

REPORT INFORMATION
  Report Type: Spontaneous
  Country: US (occurrence: US)
  Receive Date: 20180117
  Receipt Date: 20180117
  Transmission Date: 20180509
  Serious: Yes (Hospitalization)
  Sender: FDA-Public Use
  Company Number: US-JNJFOC-20180112379

PATIENT
  Age: 24 Month
  Sex: Male

DRUGS (1)
  1. IBUPROFEN. [Suspect]
     Active Substance: IBUPROFEN
     Indication: ACCIDENTAL EXPOSURE TO PRODUCT
     Dosage: SINGLE INGESTION OF LIQUID IBUPROFEN
     Route: 048

REACTIONS (5)
  - Accidental exposure to product [Unknown]
  - Failure of child resistant mechanism for pharmaceutical product [Unknown]
  - Obstruction gastric [Not Recovered/Not Resolved]
  - Pyloric stenosis [Not Recovered/Not Resolved]
  - Overdose [Unknown]
